FAERS Safety Report 18471125 (Version 1)
Quarter: 2020Q4

REPORT INFORMATION
  Report Type: Spontaneous
  Country: CH (occurrence: CH)
  Receive Date: 20201106
  Receipt Date: 20201106
  Transmission Date: 20210114
  Serious: Yes (Hospitalization, Other)
  Sender: FDA-Public Use
  Company Number: CH-SA-2020SA307024

PATIENT

DRUGS (3)
  1. DALTEPARIN [Suspect]
     Active Substance: DALTEPARIN
     Indication: PROPHYLAXIS
     Dosage: 2500 IE, QD
  2. CLOPIDOGREL BISULFATE. [Suspect]
     Active Substance: CLOPIDOGREL BISULFATE
     Indication: COAGULOPATHY
     Dosage: 75 MG, QD
  3. RIVAROXABAN [Suspect]
     Active Substance: RIVAROXABAN
     Indication: ATRIAL FIBRILLATION
     Dosage: 20 MG, QD

REACTIONS (4)
  - Disorientation [Unknown]
  - Haemoglobin decreased [Unknown]
  - Fall [Unknown]
  - Subarachnoid haemorrhage [Recovered/Resolved]
